FAERS Safety Report 6886420-4 (Version None)
Quarter: 2010Q3

REPORT INFORMATION
  Report Type: 
  Country: None (occurrence: None)
  Receive Date: 20100729
  Receipt Date: 20080626
  Transmission Date: 20110219
  Serious: No
  Sender: FDA-Public Use
  Company Number: US-PFIZER INC-2008054620

PATIENT
  Sex: Male
  Weight: 113.63 kg

DRUGS (6)
  1. CELEBREX [Suspect]
     Indication: GOUT
  2. VYTORIN [Concomitant]
     Indication: BLOOD CHOLESTEROL INCREASED
  3. SYNTHROID [Concomitant]
     Indication: THYROID DISORDER
  4. ACIPHEX [Concomitant]
     Indication: GASTROOESOPHAGEAL REFLUX DISEASE
  5. COLCHICINE [Concomitant]
     Indication: GOUT
  6. ALLOPURINOL [Concomitant]
     Indication: GOUT

REACTIONS (1)
  - PRURITUS [None]
